FAERS Safety Report 6372225-X (Version None)
Quarter: 2009Q3

REPORT INFORMATION
  Report Type: 
  Country: None (occurrence: None)
  Receive Date: 20090924
  Receipt Date: 20090915
  Transmission Date: 20100115
  Serious: Yes (Hospitalization)
  Sender: FDA-Public Use
  Company Number: US-BIOGENIDEC-2009BI029719

PATIENT
  Age: 55 Year
  Sex: Male

DRUGS (2)
  1. TYSABRI [Suspect]
     Indication: MULTIPLE SCLEROSIS
     Route: 042
     Dates: start: 20061013
  2. BACLOFEN [Concomitant]

REACTIONS (4)
  - APHASIA [None]
  - CONFUSIONAL STATE [None]
  - DISORIENTATION [None]
  - OVERDOSE [None]
